FAERS Safety Report 9809111 (Version 1)
Quarter: 2014Q1

REPORT INFORMATION
  Report Type: Spontaneous
  Country: MY (occurrence: MY)
  Receive Date: 20140110
  Receipt Date: 20140110
  Transmission Date: 20141002
  Serious: Yes (Other)
  Sender: FDA-Public Use
  Company Number: PHHY2013MY154999

PATIENT
  Age: 9 Year
  Sex: Male

DRUGS (1)
  1. TEGRETOL CR [Suspect]
     Indication: EPILEPSY
     Dosage: 100 MG, DAILY
     Route: 048

REACTIONS (2)
  - Vasculitic rash [Recovered/Resolved]
  - Urticaria [Recovered/Resolved]
